FAERS Safety Report 10197618 (Version 1)
Quarter: 2014Q2

REPORT INFORMATION
  Report Type: Spontaneous
  Country: US (occurrence: US)
  Receive Date: 20140527
  Receipt Date: 20140527
  Transmission Date: 20141212
  Serious: No
  Sender: FDA-Public Use
  Company Number: US-NOVEN-14US009276

PATIENT
  Sex: Female

DRUGS (1)
  1. MINIVELLE [Suspect]
     Indication: PRODUCT USED FOR UNKNOWN INDICATION
     Dosage: 0.1 MG/DAY, ONE PATCH EVERY TWO DAYS
     Route: 062

REACTIONS (3)
  - Nausea [Unknown]
  - Anxiety [Unknown]
  - Inappropriate schedule of drug administration [Unknown]
